FAERS Safety Report 15966426 (Version 2)
Quarter: 2019Q3

REPORT INFORMATION
  Report Type: Spontaneous
  Country: JP (occurrence: JP)
  Receive Date: 20190215
  Receipt Date: 20190722
  Transmission Date: 20191004
  Serious: Yes (Other)
  Sender: FDA-Public Use
  Company Number: PHJP2019JP001373

PATIENT
  Sex: Female

DRUGS (3)
  1. GILENYA [Suspect]
     Active Substance: FINGOLIMOD HYDROCHLORIDE
     Indication: MULTIPLE SCLEROSIS
     Dosage: 0.5 MG, QOD
     Route: 048
     Dates: start: 20120517
  2. GILENYA [Suspect]
     Active Substance: FINGOLIMOD HYDROCHLORIDE
     Dosage: 0.5 MG, QW5
     Route: 048
     Dates: start: 20180619
  3. GILENYA [Suspect]
     Active Substance: FINGOLIMOD HYDROCHLORIDE
     Dosage: 0.5 MG, ONCE EVERY 3 DAYS
     Route: 048
     Dates: start: 201511

REACTIONS (5)
  - Prescribed underdose [Unknown]
  - Paresis [Unknown]
  - Paralysis [Unknown]
  - Hypoaesthesia [Unknown]
  - Rebound effect [Recovered/Resolved]

NARRATIVE: CASE EVENT DATE: 20151220
